FAERS Safety Report 4565211-3 (Version None)
Quarter: 2005Q1

REPORT INFORMATION
  Report Type: 
  Country: None (occurrence: None)
  Receive Date: 20050127
  Receipt Date: 20050127
  Transmission Date: 20050727
  Serious: Yes (Death)
  Sender: FDA-Public Use
  Company Number: None

PATIENT
  Sex: Male

DRUGS (3)
  1. FLUDARABINE PHOSPHATE [Suspect]
     Dosage: 25
  2. MITOXANTRONE [Suspect]
     Dosage: 10
  3. RITUXIMAB (C2B8 ANTIBODY) [Suspect]
     Dosage: 375

REACTIONS (1)
  - GASTROINTESTINAL HAEMORRHAGE [None]
